FAERS Safety Report 6220362-2 (Version None)
Quarter: 2009Q2

REPORT INFORMATION
  Report Type: 
  Country: None (occurrence: None)
  Receive Date: 20090610
  Receipt Date: 20090529
  Transmission Date: 20091009
  Serious: Yes (Hospitalization)
  Sender: FDA-Public Use
  Company Number: FR-PFIZER INC-2009219999

PATIENT
  Age: 61 Year

DRUGS (8)
  1. SUTENT [Suspect]
     Indication: PROSTATE CANCER METASTATIC
     Dosage: UNK
     Dates: start: 20090204, end: 20090430
  2. LERCAN [Concomitant]
     Indication: HYPERTENSION
  3. CARDENSIEL [Concomitant]
     Indication: HYPERTENSION
  4. HYZAAR [Concomitant]
     Indication: HYPERTENSION
  5. GLUCOPHAGE [Concomitant]
     Indication: TYPE 2 DIABETES MELLITUS
  6. DAONIL [Concomitant]
     Indication: TYPE 2 DIABETES MELLITUS
  7. NOVOMIX [Concomitant]
     Indication: TYPE 2 DIABETES MELLITUS
  8. DIPROSONE [Concomitant]
     Indication: ECZEMA
     Dosage: UNK
     Route: 061
     Dates: start: 20090330

REACTIONS (3)
  - ERYTHEMA [None]
  - SKIN NECROSIS [None]
  - SKIN ULCER [None]
